FAERS Safety Report 7636811-9 (Version None)
Quarter: 2011Q3

REPORT INFORMATION
  Report Type: 
  Country: None (occurrence: None)
  Receive Date: 20110719
  Receipt Date: 20110712
  Transmission Date: 20111222
  Serious: Yes (Other)
  Sender: FDA-Public Use
  Company Number: 1000022140

PATIENT
  Age: 46 Year
  Sex: Male

DRUGS (5)
  1. METHADONE HCL [Suspect]
     Indication: PAIN
     Dosage: 10 MG, ORAL
     Route: 048
  2. SAVELLA [Suspect]
     Dosage: ORAL
     Route: 048
  3. METOPROLOL SUCCINATE [Concomitant]
  4. LYRICA [Suspect]
     Indication: FIBROMYALGIA
     Dosage: 300 MG (100 MG, 3 IN 1 D), ORAL
     Route: 048
  5. MOTRIN [Concomitant]

REACTIONS (15)
  - NECK INJURY [None]
  - STRESS [None]
  - FATIGUE [None]
  - PAIN [None]
  - JOINT INJURY [None]
  - BACK INJURY [None]
  - TREMOR [None]
  - MALAISE [None]
  - INSOMNIA [None]
  - PAIN IN EXTREMITY [None]
  - DEPRESSION [None]
  - AGITATION [None]
  - SUICIDAL IDEATION [None]
  - MUSCLE SPASMS [None]
  - LOWER LIMB FRACTURE [None]
